FAERS Safety Report 7648695-3 (Version None)
Quarter: 2011Q3

REPORT INFORMATION
  Report Type: 
  Country: None (occurrence: None)
  Receive Date: 20110801
  Receipt Date: 20110722
  Transmission Date: 20111222
  Serious: Yes (Other)
  Sender: FDA-Public Use
  Company Number: PHHY2011JP67271

PATIENT
  Sex: Male
  Weight: 53 kg

DRUGS (9)
  1. METHYCOBAL [Concomitant]
     Dosage: 1500 UG, UNK
     Route: 048
  2. BASEN [Concomitant]
     Dosage: 0.9 MG, UNK
     Route: 048
  3. LOXOPROFEN [Concomitant]
     Dosage: 60 MG, UNK
     Route: 048
  4. BEZATOL - SLOW RELEASE [Concomitant]
     Dosage: 200 MG, UNK
     Route: 048
  5. AFINITOR [Suspect]
     Indication: METASTATIC RENAL CELL CARCINOMA
     Dosage: 10 MG, DAILY
     Route: 048
     Dates: start: 20110512, end: 20110517
  6. AFINITOR [Suspect]
     Dosage: 5 MG, DAILY
     Route: 048
     Dates: start: 20110531
  7. LEVEMIR [Concomitant]
     Dosage: 3 IU, UNK
     Route: 058
  8. METFORMIN HCL [Concomitant]
     Dosage: 750 MG, UNK
     Route: 048
  9. NOVORAPID [Concomitant]
     Dosage: 16 IU, UNK
     Route: 058

REACTIONS (2)
  - NEUTROPHIL COUNT DECREASED [None]
  - C-REACTIVE PROTEIN INCREASED [None]
